FAERS Safety Report 6702368-X (Version None)
Quarter: 2010Q2

REPORT INFORMATION
  Report Type: 
  Country: None (occurrence: None)
  Receive Date: 20100429
  Receipt Date: 20100415
  Transmission Date: 20101027
  Serious: Yes (Death, Hospitalization, Other)
  Sender: FDA-Public Use
  Company Number: US-ELI_LILLY_AND_COMPANY-US201004004881

PATIENT
  Sex: Female

DRUGS (16)
  1. FORTEO [Suspect]
     Indication: OSTEOPOROSIS
     Dates: start: 20090801, end: 20100301
  2. ADVAIR DISKUS 100/50 [Concomitant]
  3. AMITRIPTYLINE [Concomitant]
  4. ARTHROTEC [Concomitant]
  5. ASTELIN [Concomitant]
  6. CETIRIZINE HYDROCHLORIDE [Concomitant]
  7. FLUOXETINE [Concomitant]
  8. FOLIC ACID [Concomitant]
  9. HYDROCODONE BITARTRATE [Concomitant]
     Dosage: 500 MG, UNKNOWN
  10. IMITREX [Concomitant]
  11. LOMOTIL [Concomitant]
  12. NEXIUM [Concomitant]
  13. PHENERGAN [Concomitant]
  14. SINGULAIR [Concomitant]
  15. WELCHOL [Concomitant]
  16. ZOLPIDEM [Concomitant]

REACTIONS (3)
  - FALL [None]
  - HEAD INJURY [None]
  - LEUKAEMIA [None]
